FAERS Safety Report 6250323-9 (Version None)
Quarter: 2009Q2

REPORT INFORMATION
  Report Type: 
  Country: None (occurrence: None)
  Receive Date: 20090630
  Receipt Date: 20090625
  Transmission Date: 20091009
  Serious: Yes (Death, Hospitalization)
  Sender: FDA-Public Use
  Company Number: BR-SANOFI-SYNTHELABO-D01200702151

PATIENT
  Sex: Male
  Weight: 54 kg

DRUGS (12)
  1. MINERAL OIL [Concomitant]
     Dates: start: 20070131, end: 20070327
  2. IRON SULFATETHIAMIN COMPOUND TAB [Concomitant]
     Dates: start: 20070129, end: 20070327
  3. PARACETAMOL [Concomitant]
     Dates: start: 20070129, end: 20070328
  4. FOLIC ACID [Concomitant]
     Dates: start: 20070131, end: 20070327
  5. MORPHINE [Concomitant]
     Dates: start: 20070129, end: 20070328
  6. FINASTERIDE [Concomitant]
  7. DOXAZOSIN MESYLATE [Concomitant]
     Dates: start: 20070102, end: 20070328
  8. FINASTERIDE [Concomitant]
     Dates: start: 20070101, end: 20070328
  9. LEUCOVORIN CALCIUM [Suspect]
     Route: 042
     Dates: start: 20070321, end: 20070321
  10. FLUOROURACIL [Suspect]
     Dosage: 400 MG/M?, IV BOLUS D1+D2 FOLLOWED BY 5-FU 2400 MG/M? OVER 46-HOUR CONTINUOUS INFUSION.
     Route: 042
     Dates: start: 20070321, end: 20070323
  11. OXALIPLATIN [Suspect]
     Route: 042
     Dates: start: 20070321, end: 20070321
  12. SR57746 OR PLACEBO [Suspect]
     Indication: NEUROLOGICAL SYMPTOM
     Route: 048
     Dates: start: 20070321, end: 20070325

REACTIONS (2)
  - INTESTINAL OBSTRUCTION [None]
  - SUDDEN CARDIAC DEATH [None]
